FAERS Safety Report 12069786 (Version 3)
Quarter: 2016Q1

REPORT INFORMATION
  Report Type: Spontaneous
  Country: None (occurrence: UA)
  Receive Date: 20160211
  Receipt Date: 20160219
  Transmission Date: 20160526
  Serious: No
  Sender: FDA-Public Use
  Company Number: UA-MERCK KGAA-1047686

PATIENT

DRUGS (1)
  1. NOVOTHYROX [Suspect]
     Active Substance: LEVOTHYROXINE SODIUM

REACTIONS (16)
  - Angiopathy [None]
  - Blood pressure increased [None]
  - Chromaturia [None]
  - Swelling face [None]
  - Hypersomnia [None]
  - Condition aggravated [None]
  - Foreign body sensation in eyes [None]
  - Contusion [None]
  - Night sweats [None]
  - Mucosal dryness [None]
  - Dysmenorrhoea [None]
  - Asthenia [None]
  - Somnolence [None]
  - Eye irritation [None]
  - Hypothyroidism [None]
  - General physical health deterioration [None]
